FAERS Safety Report 7754480-4 (Version None)
Quarter: 2011Q3

REPORT INFORMATION
  Report Type: 
  Country: None (occurrence: None)
  Receive Date: 20110915
  Receipt Date: 20110909
  Transmission Date: 20111222
  Serious: Yes (Life-Threatening, Hospitalization)
  Sender: FDA-Public Use
  Company Number: ES-ROCHE-801864

PATIENT
  Age: 63 Year
  Sex: Male

DRUGS (2)
  1. RIBAVIRIN [Suspect]
     Indication: HEPATITIS C
     Dosage: DOSE: NOT REPORTED.
     Route: 048
     Dates: start: 20100906, end: 20110801
  2. PEGINTERFERON ALFA-2A [Suspect]
     Indication: HEPATITIS C
     Dosage: DOSE AND DOSE FORM: NOT REPORTED.
     Route: 058
     Dates: start: 20100906, end: 20110801

REACTIONS (3)
  - RENAL FAILURE ACUTE [None]
  - PERIPHERAL EMBOLISM [None]
  - ANURIA [None]
